FAERS Safety Report 6637271-7 (Version None)
Quarter: 2010Q1

REPORT INFORMATION
  Report Type: 
  Country: None (occurrence: None)
  Receive Date: 20100316
  Receipt Date: 20100222
  Transmission Date: 20100710
  Serious: No
  Sender: FDA-Public Use
  Company Number: US-ABBOTT-10P-163-0628256-00

PATIENT
  Sex: Male
  Weight: 86.26 kg

DRUGS (5)
  1. TRILIPIX [Suspect]
     Indication: BLOOD CHOLESTEROL INCREASED
     Route: 048
     Dates: start: 20091201, end: 20100217
  2. GLIBURIDE/METFORMIN [Concomitant]
     Indication: DIABETES MELLITUS
     Dosage: 5/500MG; 1 IN 1 DAY
     Route: 048
  3. TOPROL-XL [Concomitant]
     Indication: HYPERTENSION
     Route: 048
  4. FLOMAX [Concomitant]
     Indication: PROSTATE CANCER
     Route: 048
     Dates: start: 20060101
  5. LISINOPRIL [Concomitant]
     Indication: HYPERTENSION
     Route: 048

REACTIONS (3)
  - BLOOD GLUCOSE ABNORMAL [None]
  - CHOLELITHIASIS [None]
  - HEPATIC ENZYME INCREASED [None]
